FAERS Safety Report 12470099 (Version 1)
Quarter: 2016Q2

REPORT INFORMATION
  Report Type: Report from Study
  Country: FR (occurrence: FR)
  Receive Date: 20160616
  Receipt Date: 20160616
  Transmission Date: 20160815
  Serious: Yes (Hospitalization)
  Sender: FDA-Public Use
  Company Number: FR-ROCHE-1775877

PATIENT
  Sex: Female

DRUGS (26)
  1. RITUXIMAB [Suspect]
     Active Substance: RITUXIMAB
     Route: 041
     Dates: start: 20060720
  2. RITUXIMAB [Suspect]
     Active Substance: RITUXIMAB
     Route: 041
     Dates: start: 20080305
  3. RITUXIMAB [Suspect]
     Active Substance: RITUXIMAB
     Route: 041
     Dates: start: 20090403
  4. METHOTREXATE [Concomitant]
     Active Substance: METHOTREXATE
     Route: 065
     Dates: start: 20091211
  5. METHOTREXATE [Concomitant]
     Active Substance: METHOTREXATE
     Route: 065
     Dates: start: 20130513
  6. CORTANCYL [Concomitant]
     Active Substance: PREDNISONE
     Route: 065
     Dates: start: 20091211
  7. RITUXIMAB [Suspect]
     Active Substance: RITUXIMAB
     Route: 041
     Dates: start: 20100624
  8. METHOTREXATE [Concomitant]
     Active Substance: METHOTREXATE
     Route: 065
     Dates: start: 20070516
  9. CORTANCYL [Concomitant]
     Active Substance: PREDNISONE
     Route: 065
     Dates: start: 20070516
  10. PLAQUENIL [Concomitant]
     Active Substance: HYDROXYCHLOROQUINE SULFATE
  11. CORTANCYL [Concomitant]
     Active Substance: PREDNISONE
     Route: 065
     Dates: start: 20080908
  12. RITUXIMAB [Suspect]
     Active Substance: RITUXIMAB
     Route: 041
     Dates: start: 20080305
  13. RITUXIMAB [Suspect]
     Active Substance: RITUXIMAB
     Route: 041
     Dates: start: 20091211
  14. METHOTREXATE [Concomitant]
     Active Substance: METHOTREXATE
     Route: 065
     Dates: start: 20080305
  15. METHOTREXATE [Concomitant]
     Active Substance: METHOTREXATE
     Route: 065
     Dates: start: 20080908
  16. METHOTREXATE [Concomitant]
     Active Substance: METHOTREXATE
     Route: 065
     Dates: start: 20090403
  17. RITUXIMAB [Suspect]
     Active Substance: RITUXIMAB
     Indication: RHEUMATOID ARTHRITIS
     Route: 041
     Dates: start: 20060706
  18. METHOTREXATE [Concomitant]
     Active Substance: METHOTREXATE
     Route: 065
     Dates: start: 20100624
  19. CORTANCYL [Concomitant]
     Active Substance: PREDNISONE
     Route: 065
     Dates: start: 20100624
  20. CORTANCYL [Concomitant]
     Active Substance: PREDNISONE
     Route: 065
     Dates: start: 20101216
  21. RITUXIMAB [Suspect]
     Active Substance: RITUXIMAB
     Route: 041
     Dates: start: 20130513
  22. METHOTREXATE [Concomitant]
     Active Substance: METHOTREXATE
     Route: 065
     Dates: start: 20101216
  23. RITUXIMAB [Suspect]
     Active Substance: RITUXIMAB
     Route: 041
     Dates: start: 20070516
  24. RITUXIMAB [Suspect]
     Active Substance: RITUXIMAB
     Route: 041
     Dates: start: 20101216
  25. CORTANCYL [Concomitant]
     Active Substance: PREDNISONE
     Route: 065
     Dates: start: 20080305
  26. CORTANCYL [Concomitant]
     Active Substance: PREDNISONE
     Route: 065
     Dates: start: 20090403

REACTIONS (4)
  - Sinusitis bacterial [Recovered/Resolved]
  - Thyroid mass [Recovered/Resolved]
  - Intraductal papillary mucinous neoplasm [Not Recovered/Not Resolved]
  - Sinusitis [Recovered/Resolved]

NARRATIVE: CASE EVENT DATE: 201106
